FAERS Safety Report 21849924 (Version 1)
Quarter: 2023Q1

REPORT INFORMATION
  Report Type: Report from Study
  Country: US (occurrence: US)
  Receive Date: 20230111
  Receipt Date: 20230111
  Transmission Date: 20230417
  Serious: No
  Sender: FDA-Public Use
  Company Number: US-ABBVIE-4233255

PATIENT
  Age: 49 Year
  Sex: Female

DRUGS (3)
  1. SKYRIZI [Suspect]
     Active Substance: RISANKIZUMAB-RZAA
     Indication: Psoriasis
     Dosage: WEEK ZERO?FORM STRENGTH: 150 MILLIGRAM
     Route: 058
     Dates: start: 20220628
  2. SKYRIZI [Suspect]
     Active Substance: RISANKIZUMAB-RZAA
     Dosage: WEEK FOUR?FORM STRENGTH: 150 MILLIGRAM
     Route: 058
     Dates: start: 202210
  3. SKYRIZI [Suspect]
     Active Substance: RISANKIZUMAB-RZAA
     Dosage: FORM STRENGTH: 150 MILLIGRAM
     Route: 058

REACTIONS (3)
  - Influenza [Recovered/Resolved]
  - Accident [Unknown]
  - Limb injury [Unknown]

NARRATIVE: CASE EVENT DATE: 20221001
